FAERS Safety Report 4662755-0 (Version None)
Quarter: 2005Q2

REPORT INFORMATION
  Report Type: 
  Country: None (occurrence: None)
  Receive Date: 20050512
  Receipt Date: 20050427
  Transmission Date: 20051028
  Serious: Yes (Other)
  Sender: FDA-Public Use
  Company Number: DE_050115136

PATIENT
  Age: 51 Year
  Sex: Female
  Weight: 58 kg

DRUGS (4)
  1. YENTREVE (DULOXETINE HYDROCHLORIDE) [Suspect]
     Indication: STRESS INCONTINENCE
     Dosage: 40 MG/2 DAY
     Dates: start: 20040930, end: 20041004
  2. NOVOTHYRAL [Concomitant]
  3. KLIOGEST [Concomitant]
  4. DIOVAN / SCH / (VALSARTAN) [Concomitant]

REACTIONS (1)
  - HALLUCINATION, VISUAL [None]
